FAERS Safety Report 13734282 (Version 2)
Quarter: 2017Q3

REPORT INFORMATION
  Report Type: Spontaneous
  Country: US (occurrence: US)
  Receive Date: 20170708
  Receipt Date: 20170804
  Transmission Date: 20171127
  Serious: No
  Sender: FDA-Public Use
  Company Number: US-009507513-1706USA005546

PATIENT
  Age: 72 Year
  Sex: Male

DRUGS (5)
  1. PURITANS PRIDE SUPER SNOOZE WITH MELATONIN [Concomitant]
  2. VITAMINS (UNSPECIFIED) [Concomitant]
     Active Substance: VITAMINS
  3. NYTOL (DIPHENHYDRAMINE HYDROCHLORIDE) [Concomitant]
  4. HERBS (UNSPECIFIED) [Concomitant]
     Active Substance: HERBALS
  5. BELSOMRA [Suspect]
     Active Substance: SUVOREXANT
     Indication: INSOMNIA
     Dosage: 20 MG, ONCE NIGHTLY
     Route: 048
     Dates: start: 20170609, end: 20170610

REACTIONS (1)
  - Drug ineffective [Not Recovered/Not Resolved]

NARRATIVE: CASE EVENT DATE: 20170609
